FAERS Safety Report 9629776 (Version 1)
Quarter: 2013Q4

REPORT INFORMATION
  Report Type: Spontaneous
  Country: US (occurrence: US)
  Receive Date: 20131017
  Receipt Date: 20131017
  Transmission Date: 20140711
  Serious: Yes (Other)
  Sender: FDA-Public Use
  Company Number: US-CELGENEUS-163-21660-13102041

PATIENT
  Sex: 0

DRUGS (3)
  1. ABRAXANE [Suspect]
     Indication: BREAST CANCER METASTATIC
     Dosage: 100 MILLIGRAM/SQ. METER
     Route: 041
  2. CARBOPLATIN [Suspect]
     Indication: BREAST CANCER METASTATIC
     Route: 041
  3. BEVACIZUMAB [Suspect]
     Indication: BREAST CANCER METASTATIC
     Dosage: 10 MILLIGRAM/KILOGRAM
     Route: 041

REACTIONS (21)
  - Meningitis [Unknown]
  - Rectal haemorrhage [Unknown]
  - Impaired healing [Unknown]
  - Decreased appetite [Unknown]
  - Anaemia [Unknown]
  - Thrombocytopenia [Unknown]
  - Neutropenia [Unknown]
  - Febrile neutropenia [Unknown]
  - Hypertension [Unknown]
  - Fatigue [Unknown]
  - Alopecia [Unknown]
  - Diarrhoea [Unknown]
  - Constipation [Unknown]
  - Vomiting [Unknown]
  - Neuropathy peripheral [Unknown]
  - Thrombosis [Unknown]
  - Pulmonary embolism [Unknown]
  - Deep vein thrombosis [Unknown]
  - Breast cancer metastatic [Unknown]
  - Dyspnoea [Unknown]
  - Chest pain [Unknown]
